FAERS Safety Report 20206859 (Version 1)
Quarter: 2021Q4

REPORT INFORMATION
  Report Type: Spontaneous
  Country: US (occurrence: None)
  Receive Date: 20211218
  Receipt Date: 20211218
  Transmission Date: 20220303
  Serious: Yes (Other)
  Sender: FDA-Public Use
  Company Number: None

PATIENT
  Age: 88 Year
  Sex: Male

DRUGS (5)
  1. VERZENIO [Suspect]
     Active Substance: ABEMACICLIB
     Dosage: FREQUENCY : TWICE A DAY;?
     Route: 048
     Dates: start: 20210916, end: 20211101
  2. OMEPRAZOLE [Concomitant]
     Active Substance: OMEPRAZOLE
  3. SIMVASTATIN [Concomitant]
     Active Substance: SIMVASTATIN
  4. OLMESARTAN [Concomitant]
     Active Substance: OLMESARTAN
  5. MECLINZE [Concomitant]

REACTIONS (3)
  - Nausea [None]
  - Vomiting [None]
  - Diarrhoea [None]

NARRATIVE: CASE EVENT DATE: 20210920
